FAERS Safety Report 14218308 (Version 4)
Quarter: 2018Q1

REPORT INFORMATION
  Report Type: Report from Study
  Country: BR (occurrence: BR)
  Receive Date: 20171123
  Receipt Date: 20180116
  Transmission Date: 20180508
  Serious: Yes (Other)
  Sender: FDA-Public Use
  Company Number: BR-JNJFOC-20170426951

PATIENT
  Age: 76 Year
  Sex: Female
  Weight: 68 kg

DRUGS (9)
  1. ARADOIS [Concomitant]
     Active Substance: LOSARTAN POTASSIUM
     Route: 065
  2. SOTALOL. [Concomitant]
     Active Substance: SOTALOL
     Route: 065
  3. VITAMIN D [Concomitant]
     Active Substance: CHOLECALCIFEROL
     Route: 065
  4. ARTROLIVE [Concomitant]
     Active Substance: CHONDROITIN SULFATE (BOVINE)\GLUCOSAMINE SULFATE
     Route: 065
  5. DEOCIL [Concomitant]
     Active Substance: KETOROLAC TROMETHAMINE
     Route: 065
  6. SIMPONI [Suspect]
     Active Substance: GOLIMUMAB
     Indication: RHEUMATOID ARTHRITIS
     Route: 058
     Dates: start: 20170221
  7. PREDNISONE. [Concomitant]
     Active Substance: PREDNISONE
     Route: 065
  8. SELOZOK [Concomitant]
     Active Substance: METOPROLOL SUCCINATE
     Route: 065
  9. DORFLEX [Concomitant]
     Active Substance: CAFFEINE\DIPYRONE\ORPHENADRINE
     Route: 065

REACTIONS (14)
  - Diverticulitis [Unknown]
  - Lactose intolerance [Unknown]
  - Memory impairment [Unknown]
  - Product availability issue [Unknown]
  - Arthralgia [Unknown]
  - Rash [Unknown]
  - Needle issue [Unknown]
  - Hand deformity [Unknown]
  - Drug dose omission [Unknown]
  - Drug dose omission [Unknown]
  - Joint swelling [Unknown]
  - Palpitations [Unknown]
  - Hypokinesia [Unknown]
  - Food allergy [Unknown]

NARRATIVE: CASE EVENT DATE: 201706
